FAERS Safety Report 9319848 (Version 1)
Quarter: 2013Q2

REPORT INFORMATION
  Report Type: Spontaneous
  Country: US (occurrence: US)
  Receive Date: 20130530
  Receipt Date: 20130530
  Transmission Date: 20140414
  Serious: Yes (Other)
  Sender: FDA-Public Use
  Company Number: US-JNJFOC-20130511574

PATIENT
  Sex: Male
  Weight: 74.84 kg

DRUGS (4)
  1. ZYTIGA [Suspect]
     Indication: PROSTATE CANCER
     Dosage: 250 MG X 4 TABLETS
     Route: 048
     Dates: start: 20130123
  2. FIRMAGON [Concomitant]
     Indication: PROSTATIC DISORDER
     Route: 058
     Dates: start: 20120703
  3. FLOMAX [Concomitant]
     Indication: BLADDER DISORDER
     Route: 048
     Dates: start: 2000
  4. NORCO [Concomitant]
     Indication: PAIN
     Dosage: DOSE: 5-325MG
     Route: 048
     Dates: start: 20130123

REACTIONS (6)
  - Neoplasm malignant [Unknown]
  - Hot flush [Not Recovered/Not Resolved]
  - Hypotension [Not Recovered/Not Resolved]
  - Sensation of pressure [Unknown]
  - Dizziness [Not Recovered/Not Resolved]
  - Anxiety [Not Recovered/Not Resolved]
